FAERS Safety Report 9549254 (Version 1)
Quarter: 2013Q3

REPORT INFORMATION
  Report Type: Spontaneous
  Country: US (occurrence: None)
  Receive Date: 20130923
  Receipt Date: 20130923
  Transmission Date: 20140515
  Serious: Yes (Other)
  Sender: FDA-Public Use
  Company Number: None

PATIENT
  Age: 7 Year
  Sex: Female
  Weight: 19.96 kg

DRUGS (1)
  1. SERTRALINE [Suspect]
     Indication: ANXIETY
     Route: 048
     Dates: start: 20130814, end: 20130906

REACTIONS (9)
  - Attention deficit/hyperactivity disorder [None]
  - Disinhibition [None]
  - Reading disorder [None]
  - Cognitive disorder [None]
  - Visual impairment [None]
  - Binocular eye movement disorder [None]
  - Saccadic eye movement [None]
  - Diplopia [None]
  - Pupillary reflex impaired [None]
